FAERS Safety Report 8624472-1 (Version None)
Quarter: 2012Q3

REPORT INFORMATION
  Report Type: 
  Country: None (occurrence: None)
  Receive Date: 20120827
  Receipt Date: 20120820
  Transmission Date: 20120928
  Serious: Yes (Death, Other)
  Sender: FDA-Public Use
  Company Number: US-TEVA-349560USA

PATIENT
  Sex: Female

DRUGS (7)
  1. CLOZAPINE [Suspect]
     Indication: SCHIZOPHRENIA
     Dosage: 100MG AM, 600MG QHS
     Route: 048
  2. COGENTIN [Concomitant]
     Dosage: HS
  3. AMBIEN [Concomitant]
     Dosage: 10 MILLIGRAM DAILY; HS
  4. WELLBUTRIN XL [Concomitant]
     Dosage: ONE, QAM
  5. RISPERDAL [Concomitant]
     Dosage: QAM, 4MG QHS
  6. COLACE [Concomitant]
     Dosage: QHS
  7. ATIVAN [Concomitant]
     Dosage: QPM

REACTIONS (2)
  - CARDIOVASCULAR DISORDER [None]
  - CARDIAC ARREST [None]
